FAERS Safety Report 5275000-2 (Version None)
Quarter: 2007Q1

REPORT INFORMATION
  Report Type: 
  Country: None (occurrence: None)
  Receive Date: 20070325
  Receipt Date: 20070314
  Transmission Date: 20070707
  Serious: Yes (Other)
  Sender: FDA-Public Use
  Company Number: GB-ABBOTT-07P-167-0362209-00

PATIENT
  Sex: Female

DRUGS (1)
  1. HUMIRA [Suspect]
     Indication: TRANSMISSION OF DRUG VIA SEMEN

REACTIONS (2)
  - ABORTION SPONTANEOUS [None]
  - TRANSMISSION OF DRUG VIA SEMEN [None]
